FAERS Safety Report 20879610 (Version 4)
Quarter: 2022Q3

REPORT INFORMATION
  Report Type: Spontaneous
  Country: BR (occurrence: BR)
  Receive Date: 20220526
  Receipt Date: 20220712
  Transmission Date: 20221026
  Serious: Yes (Other)
  Sender: FDA-Public Use
  Company Number: BR-NOVARTISPH-NVSC2022BR121242

PATIENT
  Sex: Male
  Weight: 82 kg

DRUGS (6)
  1. TEGRETOL XR [Suspect]
     Active Substance: CARBAMAZEPINE
     Indication: Epilepsy
     Dosage: 600 MG, Q12H (15 YEARS AGO)
     Route: 048
  2. TEGRETOL [Suspect]
     Active Substance: CARBAMAZEPINE
     Indication: Product used for unknown indication
     Dosage: 2 DOSAGE FORM, Q8H
     Route: 065
  3. TEGRETOL [Suspect]
     Active Substance: CARBAMAZEPINE
     Dosage: 1 DOSAGE FORM, Q12H
     Route: 065
  4. ROSUVASTATIN [Suspect]
     Active Substance: ROSUVASTATIN
     Indication: Blood cholesterol increased
     Dosage: 40 MG (1 TABLET AFTER LUNCH) (10 YEARS)
     Route: 048
  5. CARVEDILOL [Concomitant]
     Active Substance: CARVEDILOL
     Indication: Blood cholesterol increased
     Dosage: 12.5 MG, Q12H (FROM 10 YEARS)
     Route: 048
  6. ASPIRIN [Concomitant]
     Active Substance: ASPIRIN
     Indication: Blood cholesterol increased
     Dosage: 100 MG, QD (10 YEARS)
     Route: 048

REACTIONS (4)
  - Seizure [Recovered/Resolved]
  - Muscular weakness [Recovered/Resolved]
  - Confusional state [Recovered/Resolved]
  - Product availability issue [Unknown]
